FAERS Safety Report 24069034 (Version 3)
Quarter: 2024Q3

REPORT INFORMATION
  Report Type: Report from Study
  Country: CN (occurrence: CN)
  Receive Date: 20240710
  Receipt Date: 20240710
  Transmission Date: 20241016
  Serious: No
  Sender: ROCHE
  Company Number: CN-ROCHE-3274591

PATIENT
  Age: 59 Year
  Sex: Female
  Weight: 75.0 kg

DRUGS (16)
  1. ALECTINIB [Suspect]
     Active Substance: ALECTINIB
     Indication: Lung cancer metastatic
     Route: 048
     Dates: start: 20210723
  2. ALECTINIB [Suspect]
     Active Substance: ALECTINIB
     Route: 048
     Dates: start: 20200921
  3. COMPOUND YIGANLING CAPSULE [Concomitant]
     Indication: Aspartate aminotransferase increased
     Route: 048
     Dates: start: 20210722, end: 202205
  4. COMPOUND YIGANLING CAPSULE [Concomitant]
     Route: 048
     Dates: start: 20230915
  5. VITAMIN B COMPLEX [Concomitant]
     Active Substance: CYANOCOBALAMIN\DEXPANTHENOL\NIACINAMIDE\PYRIDOXINE HYDROCHLORIDE\RIBOFLAVIN 5^-PHOSPHATE SODIUM\THIA
     Indication: Stomatitis
     Route: 048
     Dates: start: 20210727
  6. RABEPRAZOLE [Concomitant]
     Active Substance: RABEPRAZOLE
     Indication: Chronic gastritis
     Dosage: ENTERIC-SOLUBLE CAPSULE
     Route: 048
     Dates: start: 20211120
  7. HERBALS [Concomitant]
     Active Substance: HERBALS
     Dosage: SOFT CAPSULE
     Route: 048
     Dates: start: 20211217, end: 20220827
  8. ELEMENE [Concomitant]
     Route: 050
     Dates: start: 20221110, end: 20221112
  9. THYMOPEPTIDES [Concomitant]
     Route: 048
     Dates: start: 20220513
  10. UBENIMEX [Concomitant]
     Active Substance: UBENIMEX
     Route: 048
     Dates: start: 20221113
  11. LEVOTHYROXINE SODIUM [Concomitant]
     Active Substance: LEVOTHYROXINE SODIUM
     Route: 048
     Dates: start: 20220925, end: 20221112
  12. LEVOTHYROXINE SODIUM [Concomitant]
     Active Substance: LEVOTHYROXINE SODIUM
     Route: 001
     Dates: start: 20221113
  13. POTASSIUM CHLORIDE [Concomitant]
     Active Substance: POTASSIUM CHLORIDE
     Route: 048
     Dates: start: 20230912, end: 20230915
  14. HERBALS\DIAMMONIUM GLYCYRRHIZINATE [Concomitant]
     Active Substance: HERBALS\DIAMMONIUM GLYCYRRHIZINATE
     Route: 048
     Dates: start: 20230708, end: 202309
  15. OMEPRAZOLE [Concomitant]
     Active Substance: OMEPRAZOLE
     Route: 048
     Dates: start: 20220925, end: 202210
  16. DEXAMETHASONE SODIUM PHOSPHATE [Concomitant]
     Active Substance: DEXAMETHASONE PHOSPHATE\DEXAMETHASONE SODIUM PHOSPHATE
     Route: 042
     Dates: start: 20220921, end: 20220924

REACTIONS (1)
  - Hypertriglyceridaemia [Not Recovered/Not Resolved]

NARRATIVE: CASE EVENT DATE: 20220315
